FAERS Safety Report 18656244 (Version 1)
Quarter: 2020Q4

REPORT INFORMATION
  Report Type: Spontaneous
  Country: NL (occurrence: NL)
  Receive Date: 20201223
  Receipt Date: 20201223
  Transmission Date: 20210114
  Serious: Yes (Hospitalization)
  Sender: FDA-Public Use
  Company Number: NL-TEVA-2020-NL-1860697

PATIENT
  Age: 79 Year
  Sex: Female

DRUGS (3)
  1. LERCANIDIPINE TABLET OMHULD 10MG / LERCANIDIPINE HCL AUROBINDO TABLET [Concomitant]
     Dosage: THERAPY END DATE : ASKED BUT UNKNOWN
     Dates: start: 20201001
  2. CLOPIDOGREL TABLET   75MG / BRAND NAME NOT SPECIFIED [Suspect]
     Active Substance: CLOPIDOGREL BISULFATE
     Indication: CEREBRAL INFARCTION
     Dosage: 75 MG,THERAPY END DATE : ASKED BUT UNKNOWN
     Dates: start: 20200803
  3. ISOSORBIDE / BRAND NAME NOT SPECIFIED [Concomitant]
     Dosage: THERAPY END DATE : ASKED BUT UNKNOWN
     Dates: start: 20201109

REACTIONS (9)
  - Dyspepsia [Recovered/Resolved]
  - Mouth swelling [Recovered/Resolved]
  - Myalgia [Recovered/Resolved]
  - Palpitations [Recovered/Resolved]
  - Diarrhoea [Recovered/Resolved]
  - Headache [Recovered/Resolved]
  - Dizziness [Recovered/Resolved]
  - Nausea [Recovered/Resolved]
  - Abdominal pain [Recovered/Resolved]

NARRATIVE: CASE EVENT DATE: 20201113
